FAERS Safety Report 10581846 (Version 2)
Quarter: 2014Q4

REPORT INFORMATION
  Report Type: Spontaneous
  Country: GB (occurrence: GB)
  Receive Date: 20141113
  Receipt Date: 20141208
  Transmission Date: 20150529
  Serious: Yes (Other)
  Sender: FDA-Public Use
  Company Number: GB-WATSON-2014-24040

PATIENT
  Age: 79 Year
  Sex: Female

DRUGS (1)
  1. TRAMADOL MEPHA [Suspect]
     Active Substance: TRAMADOL HYDROCHLORIDE
     Indication: PRODUCT USED FOR UNKNOWN INDICATION
     Dosage: 100 MG, UNKNOWN
     Route: 048

REACTIONS (8)
  - Dependence [Unknown]
  - Feeling abnormal [Unknown]
  - Tremor [Unknown]
  - Malaise [Unknown]
  - Nausea [Unknown]
  - Product quality issue [Unknown]
  - Incorrect dose administered [Unknown]
  - Vertigo [Unknown]
